FAERS Safety Report 24571768 (Version 3)
Quarter: 2024Q4

REPORT INFORMATION
  Report Type: Spontaneous
  Country: US (occurrence: US)
  Receive Date: 20241101
  Receipt Date: 20241218
  Transmission Date: 20250115
  Serious: Yes (Other)
  Sender: GLAXOSMITHKLINE
  Company Number: US-GSKCCFUS-Case-02139738_AE-118000

PATIENT
  Sex: Female

DRUGS (1)
  1. ADVAIR HFA [Suspect]
     Active Substance: FLUTICASONE PROPIONATE\SALMETEROL XINAFOATE
     Indication: Asthma
     Dosage: UNK, 230MCG/21MCG

REACTIONS (5)
  - Cataract [Unknown]
  - Fall [Unknown]
  - Dyspnoea [Recovered/Resolved]
  - Incorrect dose administered [Unknown]
  - Product complaint [Unknown]
